FAERS Safety Report 9852634 (Version 1)
Quarter: 2014Q1

REPORT INFORMATION
  Report Type: Spontaneous
  Country: US (occurrence: None)
  Receive Date: 20140128
  Receipt Date: 20140128
  Transmission Date: 20141002
  Serious: Yes (Other)
  Sender: FDA-Public Use
  Company Number: None

PATIENT
  Age: 28 Year
  Sex: Female
  Weight: 71.67 kg

DRUGS (5)
  1. SUBOXONE [Suspect]
     Indication: DRUG ABUSE
     Route: 058
     Dates: start: 20130213, end: 20130409
  2. SERTRALINE [Concomitant]
  3. BUPREMORPHINE HCL [Concomitant]
  4. CLONAREPAM [Concomitant]
  5. NICOTINE [Suspect]

REACTIONS (3)
  - Rash [None]
  - Nausea [None]
  - Vomiting [None]
